FAERS Safety Report 8809107 (Version 1)
Quarter: 2012Q4

REPORT INFORMATION
  Report Type: Spontaneous
  Country: US (occurrence: None)
  Receive Date: 20120921
  Receipt Date: 20120921
  Transmission Date: 20130627
  Serious: Yes (Other)
  Sender: FDA-Public Use
  Company Number: None

PATIENT
  Age: 13 Year
  Sex: Male
  Weight: 58.97 kg

DRUGS (1)
  1. SINGULAIR [Suspect]
     Indication: MULTIPLE ALLERGIES
     Route: 048
     Dates: start: 20120530, end: 20120605

REACTIONS (7)
  - Insomnia [None]
  - Nightmare [None]
  - Enuresis [None]
  - Stress [None]
  - Abnormal behaviour [None]
  - Tic [None]
  - Blepharospasm [None]
